FAERS Safety Report 12039500 (Version 1)
Quarter: 2016Q1

REPORT INFORMATION
  Report Type: Report from Study
  Country: None (occurrence: US)
  Receive Date: 20160208
  Receipt Date: 20160208
  Transmission Date: 20160526
  Serious: No
  Sender: FDA-Public Use
  Company Number: US-AMAG PHARMACEUTICALS, INC.-AMAG201501494

PATIENT

DRUGS (6)
  1. METRONIDAZOLE. [Concomitant]
     Active Substance: METRONIDAZOLE
  2. FLUCONAZOLE. [Concomitant]
     Active Substance: FLUCONAZOLE
  3. IRON [Concomitant]
     Active Substance: IRON
  4. MAKENA [Suspect]
     Active Substance: HYDROXYPROGESTERONE CAPROATE
     Indication: PREMATURE DELIVERY
     Dosage: 250 MG, WEEKLY
     Dates: start: 20150818
  5. PRENATAL VITAMINS [Concomitant]
     Active Substance: VITAMINS
  6. MICONAZOLE. [Concomitant]
     Active Substance: MICONAZOLE

REACTIONS (5)
  - Anaemia [Unknown]
  - Swelling [Unknown]
  - Urinary tract infection [Unknown]
  - Headache [Unknown]
  - Palpitations [Unknown]

NARRATIVE: CASE EVENT DATE: 201508
